FAERS Safety Report 9251552 (Version 2)
Quarter: 2013Q2

REPORT INFORMATION
  Report Type: Report from Study
  Country: JP (occurrence: JP)
  Receive Date: 20130424
  Receipt Date: 20130507
  Transmission Date: 20140414
  Serious: Yes (Death, Hospitalization)
  Sender: FDA-Public Use
  Company Number: JP-NOVOPROD-375878

PATIENT
  Age: 78 Year
  Sex: Male
  Weight: 42 kg

DRUGS (12)
  1. LIRAGLUTIDE FLEXPEN [Suspect]
     Indication: TYPE 2 DIABETES MELLITUS
     Dosage: 0.3 MG, MORNING
     Route: 058
     Dates: start: 20111231
  2. LIRAGLUTIDE FLEXPEN [Suspect]
     Dosage: 0.6 MG, QD
     Route: 058
     Dates: start: 20120107
  3. LIRAGLUTIDE FLEXPEN [Suspect]
     Dosage: 0.9 MG, QD
     Route: 058
     Dates: start: 20120306, end: 20120913
  4. AMARYL [Concomitant]
     Dosage: 1 MG, QD
     Route: 065
     Dates: start: 20120104
  5. AMARYL [Concomitant]
     Dosage: 0.5 MG, QD
     Route: 065
     Dates: start: 20120111
  6. AMARYL [Concomitant]
     Dosage: 0.25 MG, QD
     Route: 065
     Dates: start: 20120118, end: 20120502
  7. AMARYL [Concomitant]
     Dosage: UNKNOWN
     Route: 065
     Dates: end: 20120502
  8. RISPERDAL [Concomitant]
     Dosage: UNKNOWN
     Route: 048
     Dates: end: 20120913
  9. ARICEPT [Concomitant]
     Dosage: UNKNOWN
     Route: 048
     Dates: end: 20120913
  10. DOGMATYL [Concomitant]
     Dosage: UNKNOWN
     Route: 048
     Dates: end: 20120913
  11. SAWATENE [Concomitant]
     Dosage: UNKNOWN
     Route: 048
     Dates: end: 20120913
  12. YOKUKAN-SAN [Concomitant]
     Dosage: UNKNOWN
     Route: 048
     Dates: end: 20120913

REACTIONS (2)
  - Sudden death [Fatal]
  - Pneumonia [Recovered/Resolved]
